FAERS Safety Report 23208250 (Version 1)
Quarter: 2023Q4

REPORT INFORMATION
  Report Type: Spontaneous
  Country: DE (occurrence: DE)
  Receive Date: 20231121
  Receipt Date: 20231121
  Transmission Date: 20240109
  Serious: Yes (Other)
  Sender: FDA-Public Use
  Company Number: DE-002147023-NVSC2023DE244866

PATIENT
  Age: 82 Year
  Sex: Male

DRUGS (1)
  1. AZOPT [Suspect]
     Active Substance: BRINZOLAMIDE
     Indication: Intraocular pressure increased
     Dosage: UNK
     Route: 047

REACTIONS (5)
  - Cataract [Unknown]
  - Eye irritation [Unknown]
  - Eye pain [Not Recovered/Not Resolved]
  - Ocular discomfort [Not Recovered/Not Resolved]
  - Keratitis [Unknown]

NARRATIVE: CASE EVENT DATE: 20230101
